FAERS Safety Report 4781071-X (Version None)
Quarter: 2005Q3

REPORT INFORMATION
  Report Type: 
  Country: None (occurrence: None)
  Receive Date: 20050928
  Receipt Date: 20050916
  Transmission Date: 20060218
  Serious: Yes (Hospitalization)
  Sender: FDA-Public Use
  Company Number: US-JNJFOC-20050904433

PATIENT
  Sex: Female
  Weight: 69.85 kg

DRUGS (8)
  1. REMICADE [Suspect]
     Route: 042
  2. REMICADE [Suspect]
     Indication: RHEUMATOID ARTHRITIS
     Route: 042
  3. PREDNISONE [Concomitant]
  4. CLONAZEPAM [Concomitant]
  5. PAXIL [Concomitant]
  6. NORTRIPTYLINE HCL [Concomitant]
  7. OXYCODONE HCL [Concomitant]
  8. OXYCONTIN [Concomitant]

REACTIONS (4)
  - DYSPEPSIA [None]
  - MASS [None]
  - PAIN [None]
  - SWELLING [None]
